FAERS Safety Report 5646343-5 (Version None)
Quarter: 2008Q1

REPORT INFORMATION
  Report Type: 
  Country: None (occurrence: None)
  Receive Date: 20080227
  Receipt Date: 20080212
  Transmission Date: 20080703
  Serious: Yes (Life-Threatening, Other)
  Sender: FDA-Public Use
  Company Number: 6040381

PATIENT
  Age: 85 Year
  Sex: Female

DRUGS (7)
  1. BISOPROLOL FUMARATE [Suspect]
     Indication: DRUG USE FOR UNKNOWN INDICATION
     Dosage: ORAL
     Route: 048
  2. DIFFU-K (CAPSULE) (POTASSIUM CHLORIDE) [Suspect]
     Indication: DRUG USE FOR UNKNOWN INDICATION
     Dosage: ORAL
     Route: 048
  3. AMIODARONE HCL [Suspect]
     Indication: DRUG USE FOR UNKNOWN INDICATION
  4. ALDACTONE [Suspect]
     Indication: DRUG USE FOR UNKNOWN INDICATION
     Dosage: ORAL
     Route: 048
  5. ATORVASTATIN CALCIUM [Concomitant]
  6. LASIX [Concomitant]
  7. PREVISCAN (TABLET) (FLUINDIONE) [Concomitant]

REACTIONS (8)
  - ATRIOVENTRICULAR BLOCK COMPLETE [None]
  - BLOOD CREATINE INCREASED [None]
  - BLOOD SODIUM DECREASED [None]
  - BLOOD UREA INCREASED [None]
  - DRUG INTERACTION [None]
  - HYPERKALAEMIA [None]
  - LOSS OF CONSCIOUSNESS [None]
  - MALAISE [None]
